FAERS Safety Report 9602149 (Version 1)
Quarter: 2013Q4

REPORT INFORMATION
  Report Type: Spontaneous
  Country: US (occurrence: None)
  Receive Date: 20131002
  Receipt Date: 20131002
  Transmission Date: 20140711
  Serious: Yes (Other)
  Sender: FDA-Public Use
  Company Number: AG-2013-015405

PATIENT
  Age: 30 Year
  Sex: Female

DRUGS (1)
  1. CHLORAMBUCIL [Suspect]
     Indication: GLOMERULONEPHRITIS MEMBRANOUS

REACTIONS (2)
  - Off label use [None]
  - Rheumatoid arthritis [None]
